FAERS Safety Report 21703993 (Version 1)
Quarter: 2022Q4

REPORT INFORMATION
  Report Type: Spontaneous
  Country: CN (occurrence: CN)
  Receive Date: 20221209
  Receipt Date: 20221209
  Transmission Date: 20230113
  Serious: Yes (Hospitalization, Other)
  Sender: FDA-Public Use
  Company Number: None

PATIENT
  Age: 60 Year
  Sex: Female
  Weight: 75 kg

DRUGS (4)
  1. CYCLOPHOSPHAMIDE [Suspect]
     Active Substance: CYCLOPHOSPHAMIDE
     Indication: Chemotherapy
     Dosage: 0.66 G, ONCE IN TWO DAYS, DILUTED WITH 100 ML SODIUM CHLORIDE
     Route: 041
     Dates: start: 20221115, end: 20221117
  2. SODIUM CHLORIDE [Suspect]
     Active Substance: SODIUM CHLORIDE
     Indication: Medication dilution
     Dosage: 100 ML, ONCE IN TWO DAYS, USED TO DILUTE 0.66 G CYCLOPHOSPHAMIDE
     Route: 041
     Dates: start: 20221115, end: 20221117
  3. MABTHERA [Suspect]
     Active Substance: RITUXIMAB
     Indication: Chemotherapy
     Dosage: 667 MG, QD
     Route: 042
     Dates: start: 20221114, end: 20221114
  4. DOXORUBICIN HYDROCHLORIDE [Suspect]
     Active Substance: DOXORUBICIN HYDROCHLORIDE
     Indication: Chemotherapy
     Dosage: 60 MG, QD
     Route: 041
     Dates: start: 20221115, end: 20221115

REACTIONS (1)
  - Myelosuppression [Recovering/Resolving]

NARRATIVE: CASE EVENT DATE: 20221124
